FAERS Safety Report 10239372 (Version 1)
Quarter: 2014Q1

REPORT INFORMATION
  Report Type: Spontaneous
  Country: US (occurrence: None)
  Receive Date: 20140306
  Receipt Date: 20140306
  Transmission Date: 20141002
  Serious: Yes (Other)
  Sender: FDA-Public Use
  Company Number: 163-21880-13041581

PATIENT
  Age: 84 Year
  Sex: Female

DRUGS (6)
  1. REVLIMID [Suspect]
     Indication: PLASMA CELL MYELOMA
     Dosage: 10 MG, 1 IN 1 D, PO
     Route: 048
     Dates: start: 20120719
  2. HCTZ (HYDROCHLOROTHIAZIDE) (UNKNOWN) [Concomitant]
  3. WARFARIN (WARFARIN) UNKNOWN) [Concomitant]
  4. TRAMADOL (TRAMADOL) (UNKNOWN) [Concomitant]
  5. METOPROLOL (METOPROLOL) (UNKNOWN) [Concomitant]
  6. LOSARTAN (LOSARTAN) (UNKNOWN) [Concomitant]

REACTIONS (5)
  - Cardiac disorder [None]
  - Renal disorder [None]
  - Arthropathy [None]
  - Fatigue [None]
  - Pain [None]
